FAERS Safety Report 7821603-8 (Version None)
Quarter: 2011Q4

REPORT INFORMATION
  Report Type: 
  Country: None (occurrence: None)
  Receive Date: 20111018
  Receipt Date: 20110211
  Transmission Date: 20120403
  Serious: No
  Sender: FDA-Public Use
  Company Number: US-ASTRAZENECA-2010SE58513

PATIENT
  Age: 67 Year
  Sex: Female

DRUGS (6)
  1. CLONIDINE [Concomitant]
     Indication: HYPERTENSION
  2. LISINOPRIL [Concomitant]
     Indication: HYPERTENSION
  3. PROCARDIEM [Concomitant]
     Indication: HYPERTENSION
  4. GLUCOPHAGE [Concomitant]
     Indication: DIABETES MELLITUS
  5. HYDROCHLOROTHIAZIDE [Concomitant]
     Indication: HYPERTENSION
  6. SYMBICORT [Suspect]
     Dosage: 80/4.5 2 PUFFS BID
     Route: 055
     Dates: start: 20100201

REACTIONS (5)
  - DYSPHAGIA [None]
  - INAPPROPRIATE SCHEDULE OF DRUG ADMINISTRATION [None]
  - CANDIDIASIS [None]
  - APHAGIA [None]
  - DRUG DOSE OMISSION [None]
